FAERS Safety Report 4569382-4 (Version None)
Quarter: 2005Q1

REPORT INFORMATION
  Report Type: 
  Country: None (occurrence: None)
  Receive Date: 20050201
  Receipt Date: 20050118
  Transmission Date: 20050727
  Serious: Yes (Hospitalization)
  Sender: FDA-Public Use
  Company Number: 2005020225

PATIENT
  Age: 83 Year
  Sex: Male
  Weight: 68.0396 kg

DRUGS (3)
  1. CELEBREX [Suspect]
     Indication: ARTHRALGIA
     Dosage: ORAL
     Route: 048
     Dates: start: 20020101, end: 20020101
  2. DOXAZOSIN MESYLATE [Concomitant]
  3. ROFECOXIB [Concomitant]

REACTIONS (7)
  - BODY HEIGHT DECREASED [None]
  - CORONARY ARTERY SURGERY [None]
  - DRUG EFFECT DECREASED [None]
  - HEADACHE [None]
  - HOT FLUSH [None]
  - STOMACH DISCOMFORT [None]
  - THERAPY NON-RESPONDER [None]
